FAERS Safety Report 5750678-5 (Version None)
Quarter: 2008Q2

REPORT INFORMATION
  Report Type: 
  Country: None (occurrence: None)
  Receive Date: 20080528
  Receipt Date: 20080521
  Transmission Date: 20081010
  Serious: Yes (Other)
  Sender: FDA-Public Use
  Company Number: US-JNJFOC-20080505177

PATIENT
  Age: 85 Year
  Sex: Female
  Weight: 77.11 kg

DRUGS (6)
  1. TYLENOL (CAPLET) [Suspect]
     Indication: SPINAL FUSION SURGERY
     Route: 048
  2. TYLENOL (CAPLET) [Suspect]
     Indication: ARTHRITIS
     Route: 048
  3. PLAVIX [Concomitant]
     Indication: ANTICOAGULANT THERAPY
  4. ALTACE [Concomitant]
     Indication: CARDIAC DISORDER
  5. IMDUR [Concomitant]
     Indication: CARDIAC DISORDER
  6. TENORMIN [Concomitant]
     Indication: ANGINA PECTORIS

REACTIONS (1)
  - BLOOD PRESSURE INCREASED [None]
